FAERS Safety Report 7802387-6 (Version None)
Quarter: 2011Q4

REPORT INFORMATION
  Report Type: 
  Country: None (occurrence: None)
  Receive Date: 20111007
  Receipt Date: 20110902
  Transmission Date: 20120403
  Serious: Yes (Death, Life-Threatening, Hospitalization)
  Sender: FDA-Public Use
  Company Number: JP-PFIZER INC-2011201936

PATIENT
  Age: 56 Year
  Sex: Female

DRUGS (18)
  1. VOLTAREN [Suspect]
     Indication: ANTIPYRESIS
     Dosage: 25 MG, 1X/DAY
     Route: 054
     Dates: start: 20090501, end: 20090501
  2. MAOTO [Concomitant]
     Dosage: 2.5 G, 3X/DAY
     Route: 065
     Dates: start: 20090427
  3. TRANEXAMIC ACID [Concomitant]
     Dosage: 1 DF, 3X/DAY
     Route: 065
     Dates: start: 20090427
  4. LEVOFLOXACIN [Suspect]
     Indication: URINARY TRACT INFECTION
     Dosage: 100 MG, 3X/DAY
     Route: 048
     Dates: start: 20090427
  5. ACETAMINOPHEN [Concomitant]
     Dosage: 200 MG, 2X/DAY
     Route: 048
     Dates: start: 20090502, end: 20090506
  6. BETAMETHASONE [Concomitant]
     Indication: PRODUCT USED FOR UNKNOWN INDICATION
     Dosage: 1-2 DROP 4 IN ONE DAY
     Route: 046
     Dates: start: 20090401, end: 20090509
  7. BANAN [Suspect]
     Indication: URINARY TRACT INFECTION
     Dosage: 100 MG, 2X/DAY
     Route: 048
     Dates: start: 20090425
  8. VOLTAREN [Suspect]
     Dosage: 25 MG, 1X/DAY
     Route: 054
     Dates: start: 20090503, end: 20090503
  9. BIOFERMIN [Concomitant]
     Dosage: 1 DF, 3X/DAY
     Dates: start: 20090425
  10. CARNACULIN [Concomitant]
     Indication: PRODUCT USED FOR UNKNOWN INDICATION
     Dosage: 50, 3 IN 1D
     Route: 048
     Dates: start: 20090401, end: 20090509
  11. METILON [Suspect]
     Indication: ANTIPYRESIS
  12. VOLTAREN [Suspect]
     Dosage: 12.5 MG, 1X/DAY
     Route: 054
     Dates: start: 20090507, end: 20090507
  13. ACETAMINOPHEN [Concomitant]
     Dosage: UNK MG, UNK
     Route: 065
     Dates: start: 20090425
  14. POTASSIUM CHLORIDE [Concomitant]
     Indication: INFUSION
     Dosage: 1000 ML, 2X/DAY
     Route: 041
     Dates: start: 20090430, end: 20090511
  15. METILON [Suspect]
     Indication: PYELONEPHRITIS
     Dosage: 1 DF, 1X/DAY
     Route: 030
     Dates: start: 20090501, end: 20090501
  16. ROCEPHIN [Suspect]
     Indication: PYELONEPHRITIS
     Dosage: 1 G, 1X/DAY
     Route: 042
     Dates: start: 20090429, end: 20090510
  17. VOLTAREN [Suspect]
     Dosage: 12.5 MG, 1X/DAY
     Route: 054
     Dates: start: 20090506, end: 20090506
  18. VOLTAREN [Suspect]
     Dosage: 12.5 MG, 1X/DAY
     Route: 054
     Dates: start: 20090510, end: 20090510

REACTIONS (2)
  - LIVER DISORDER [None]
  - TOXIC EPIDERMAL NECROLYSIS [None]
